FAERS Safety Report 13527198 (Version 2)
Quarter: 2017Q3

REPORT INFORMATION
  Report Type: Spontaneous
  Country: US (occurrence: US)
  Receive Date: 20170509
  Receipt Date: 20170823
  Transmission Date: 20171127
  Serious: Yes (Hospitalization)
  Sender: FDA-Public Use
  Company Number: US-ASTRAZENECA-2017SE46940

PATIENT
  Age: 680 Month
  Sex: Female
  Weight: 77.1 kg

DRUGS (7)
  1. COMBIVENT [Concomitant]
     Active Substance: ALBUTEROL SULFATE\IPRATROPIUM BROMIDE
     Indication: CHRONIC OBSTRUCTIVE PULMONARY DISEASE
     Route: 055
     Dates: start: 201612, end: 201612
  2. CITALOPRAM [Concomitant]
     Active Substance: CITALOPRAM HYDROBROMIDE
     Indication: DEPRESSION
     Route: 048
  3. ADVAIR HFA [Concomitant]
     Active Substance: FLUTICASONE PROPIONATE\SALMETEROL XINAFOATE
     Indication: CHRONIC OBSTRUCTIVE PULMONARY DISEASE
     Dosage: 500/50 MCG 1 PUFF TWICE A DAY
     Route: 055
  4. ZOLPIDEM [Concomitant]
     Active Substance: ZOLPIDEM\ZOLPIDEM TARTRATE
     Indication: INSOMNIA
     Route: 048
  5. LISINOPRIL HCTZ [Suspect]
     Active Substance: HYDROCHLOROTHIAZIDE\LISINOPRIL
     Indication: HYPERTENSION
     Dosage: 20-25 MG ORALLY DAILY
     Route: 048
  6. TUDORZA PRESSAIR [Suspect]
     Active Substance: ACLIDINIUM BROMIDE
     Indication: CHRONIC OBSTRUCTIVE PULMONARY DISEASE
     Route: 055
     Dates: start: 2016, end: 201612
  7. TUDORZA PRESSAIR [Suspect]
     Active Substance: ACLIDINIUM BROMIDE
     Indication: CHRONIC OBSTRUCTIVE PULMONARY DISEASE
     Route: 055
     Dates: start: 20170103

REACTIONS (16)
  - Dyspnoea [Unknown]
  - Depression [Not Recovered/Not Resolved]
  - Therapy cessation [Not Recovered/Not Resolved]
  - Product quality issue [Unknown]
  - Hypoxia [Unknown]
  - Product use issue [Not Recovered/Not Resolved]
  - Cardiac disorder [Unknown]
  - Intentional device misuse [Not Recovered/Not Resolved]
  - Pneumonia [Recovered/Resolved]
  - Lung disorder [Unknown]
  - Emphysema [Not Recovered/Not Resolved]
  - Pulmonary mass [Not Recovered/Not Resolved]
  - Anaemia [Recovering/Resolving]
  - Influenza [Recovered/Resolved]
  - Chronic obstructive pulmonary disease [Unknown]
  - Insomnia [Not Recovered/Not Resolved]

NARRATIVE: CASE EVENT DATE: 201412
